FAERS Safety Report 4860727-4 (Version None)
Quarter: 2005Q4

REPORT INFORMATION
  Report Type: 
  Country: None (occurrence: None)
  Receive Date: 20051216
  Receipt Date: 20051216
  Transmission Date: 20060501
  Serious: Yes (Other)
  Sender: FDA-Public Use
  Company Number: None

PATIENT
  Age: 54 Year
  Sex: Female
  Weight: 72 kg

DRUGS (1)
  1. RABBIT ATG    5MG/ML         SANGASTAT [Suspect]
     Indication: HEART TRANSPLANT
     Dosage: 1.5MG/KG    QDAY X 2   IV;    0.75MG /KG  X1   IV
     Route: 042
     Dates: start: 20051107, end: 20051109

REACTIONS (4)
  - FLUSHING [None]
  - HYPOXIA [None]
  - INFUSION RELATED REACTION [None]
  - TACHYCARDIA [None]
